FAERS Safety Report 6247463-7 (Version None)
Quarter: 2009Q2

REPORT INFORMATION
  Report Type: 
  Country: None (occurrence: None)
  Receive Date: 20090626
  Receipt Date: 20090618
  Transmission Date: 20091009
  Serious: Yes (Other)
  Sender: FDA-Public Use
  Company Number: US-GILEAD-2009-0022054

PATIENT
  Sex: Female

DRUGS (14)
  1. LETAIRIS [Suspect]
     Indication: PULMONARY ARTERIAL HYPERTENSION
     Route: 048
     Dates: start: 20090402
  2. LOVASTATIN [Concomitant]
  3. ASPIRIN [Concomitant]
  4. REVATIO [Concomitant]
  5. OXYGEN [Concomitant]
  6. AMOXICILLIN [Concomitant]
  7. CALTRATE 600 [Concomitant]
  8. TYLENOL (CAPLET) [Concomitant]
  9. FIORICET [Concomitant]
  10. LEVOXYL [Concomitant]
  11. MAGNESIUM SULFATE [Concomitant]
  12. LACTAID ES [Concomitant]
  13. CVS MULTIVITAMIN [Concomitant]
  14. ELLIS TONIC [Concomitant]

REACTIONS (7)
  - COUGH [None]
  - DEAFNESS [None]
  - EAR CONGESTION [None]
  - MIDDLE EAR EFFUSION [None]
  - NASAL CONGESTION [None]
  - OEDEMA PERIPHERAL [None]
  - PYREXIA [None]
